FAERS Safety Report 20021678 (Version 1)
Quarter: 2021Q4

REPORT INFORMATION
  Report Type: Report from Study
  Country: CA (occurrence: CA)
  Receive Date: 20211101
  Receipt Date: 20211101
  Transmission Date: 20220303
  Serious: Yes (Life-Threatening, Other)
  Sender: FDA-Public Use
  Company Number: CA-BRISTOL-MYERS SQUIBB COMPANY-BMS-2021-112937

PATIENT
  Age: 55 Year
  Sex: Female

DRUGS (1)
  1. NIVOLUMAB [Suspect]
     Active Substance: NIVOLUMAB
     Indication: Anal cancer
     Dosage: 146 MILLIGRAM, Q2WK
     Route: 042
     Dates: start: 20211019, end: 20211029

REACTIONS (20)
  - Near death experience [Unknown]
  - Melaena [Unknown]
  - Haematochezia [Unknown]
  - Hallucination [Unknown]
  - Paraesthesia [Unknown]
  - Hypoaesthesia [Unknown]
  - Mouth ulceration [Unknown]
  - Muscular weakness [Unknown]
  - Blood urine present [Unknown]
  - Diarrhoea [Unknown]
  - Confusional state [Unknown]
  - Nausea [Unknown]
  - Anger [Unknown]
  - Memory impairment [Unknown]
  - Joint swelling [Unknown]
  - Weight decreased [Unknown]
  - Irritability [Unknown]
  - Abnormal faeces [Unknown]
  - Oral candidiasis [Unknown]
  - Intentional product use issue [Unknown]
